FAERS Safety Report 8389739-3 (Version None)
Quarter: 2012Q2

REPORT INFORMATION
  Report Type: 
  Country: None (occurrence: None)
  Receive Date: 20120524
  Receipt Date: 20120524
  Transmission Date: 20120825
  Serious: Yes (Other)
  Sender: FDA-Public Use
  Company Number: None

PATIENT
  Sex: Male
  Weight: 80.7403 kg

DRUGS (3)
  1. FLUOROPLEX [Suspect]
     Dosage: OINTMENT APPLIED TO BASAL CELLS 1X/DAY TOPICAL
     Route: 061
     Dates: start: 20071025, end: 20071106
  2. CLOBETASOL PROPIONATE [Suspect]
     Indication: ECZEMA
     Dosage: OINTMENT RUBBED INTO EXEMA  2X/DAY TOPICAL
     Route: 061
     Dates: start: 20120416, end: 20120430
  3. ALDARA [Concomitant]

REACTIONS (5)
  - PYREXIA [None]
  - INCONTINENCE [None]
  - CHILLS [None]
  - VOMITING [None]
  - VERTIGO POSITIONAL [None]
